FAERS Safety Report 6564263-9 (Version None)
Quarter: 2010Q1

REPORT INFORMATION
  Report Type: 
  Country: None (occurrence: None)
  Receive Date: 20100201
  Receipt Date: 20091204
  Transmission Date: 20100710
  Serious: No
  Sender: FDA-Public Use
  Company Number: US-BAYER-200937132NA

PATIENT
  Age: 37 Year
  Sex: Female
  Weight: 58 kg

DRUGS (2)
  1. MIRENA [Suspect]
     Indication: DRUG USE FOR UNKNOWN INDICATION
  2. PARAGARD T 380A [Suspect]
     Indication: DRUG USE FOR UNKNOWN INDICATION
     Dates: start: 20091013

REACTIONS (1)
  - MEDICAL DEVICE COMPLICATION [None]
